FAERS Safety Report 26125487 (Version 1)
Quarter: 2025Q4

REPORT INFORMATION
  Report Type: Spontaneous
  Country: EU (occurrence: EU)
  Receive Date: 20251205
  Receipt Date: 20251205
  Transmission Date: 20260117
  Serious: Yes (Disabling)
  Sender: RANBAXY
  Company Number: EU-AFSSAPS-PA2025000778

PATIENT
  Age: 89 Year
  Sex: Female
  Weight: 60 kg

DRUGS (4)
  1. CLOPIDOGREL [Suspect]
     Active Substance: CLOPIDOGREL BISULFATE
     Indication: Cerebrovascular accident
     Dosage: 300 MILLIGRAM, LOADING DOSE THEN 75 MG
     Route: 048
     Dates: start: 20250308
  2. CLOPIDOGREL [Suspect]
     Active Substance: CLOPIDOGREL BISULFATE
     Dosage: 75 MILLIGRAM, DAILY, LOADING DOSE THEN 75 MG
     Route: 048
     Dates: start: 20250309
  3. ASPIRIN LYSINE [Suspect]
     Active Substance: ASPIRIN LYSINE
     Indication: Cerebrovascular accident
     Dosage: 250 MILLIGRAM,  LOADING DOSE THEN 75 MG
     Route: 051
     Dates: start: 20250308
  4. ASPIRIN LYSINE [Suspect]
     Active Substance: ASPIRIN LYSINE
     Dosage: 75 MILLIGRAM, LOADING DOSE THEN 75 MG
     Route: 048
     Dates: start: 20250309

REACTIONS (3)
  - Dizziness [Recovering/Resolving]
  - Fall [Recovering/Resolving]
  - Femoral neck fracture [Recovering/Resolving]

NARRATIVE: CASE EVENT DATE: 20250312
